FAERS Safety Report 16462339 (Version 1)
Quarter: 2019Q2

REPORT INFORMATION
  Report Type: Spontaneous
  Country: US (occurrence: US)
  Receive Date: 20190621
  Receipt Date: 20190621
  Transmission Date: 20190711
  Serious: Yes (Other)
  Sender: FDA-Public Use
  Company Number: US-PFIZER INC-2019115298

PATIENT
  Age: 56 Year
  Sex: Female
  Weight: 65.77 kg

DRUGS (1)
  1. CARBOCAINE [Suspect]
     Active Substance: MEPIVACAINE HYDROCHLORIDE
     Indication: HYPOAESTHESIA
     Dosage: UNK
     Dates: start: 1996

REACTIONS (7)
  - Dysphagia [Unknown]
  - Eye swelling [Unknown]
  - Prescribed overdose [Unknown]
  - Swelling face [Unknown]
  - Drug hypersensitivity [Unknown]
  - Retinal tear [Unknown]
  - Pharyngeal swelling [Unknown]

NARRATIVE: CASE EVENT DATE: 1996
